FAERS Safety Report 23136368 (Version 6)
Quarter: 2025Q1

REPORT INFORMATION
  Report Type: Report from Study
  Country: JP (occurrence: JP)
  Receive Date: 20231102
  Receipt Date: 20250212
  Transmission Date: 20250408
  Serious: Yes (Hospitalization, Other)
  Sender: ROCHE
  Company Number: JP-CHUGAI-2023038658

PATIENT
  Age: 31 Year
  Sex: Female
  Weight: 46.0 kg

DRUGS (2)
  1. ROZLYTREK [Suspect]
     Active Substance: ENTRECTINIB
     Indication: Neoplasm
     Route: 048
     Dates: start: 20230410, end: 20230502
  2. LAROTRECTINIB SULFATE [Concomitant]
     Active Substance: LAROTRECTINIB SULFATE

REACTIONS (4)
  - Pericardial effusion [Recovered/Resolved]
  - Gait disturbance [Recovered/Resolved]
  - Disease progression [Unknown]
  - Pericarditis [Unknown]

NARRATIVE: CASE EVENT DATE: 20230411
